FAERS Safety Report 8205657-5 (Version None)
Quarter: 2012Q1

REPORT INFORMATION
  Report Type: 
  Country: None (occurrence: None)
  Receive Date: 20120313
  Receipt Date: 20120308
  Transmission Date: 20120608
  Serious: Yes (Other)
  Sender: FDA-Public Use
  Company Number: JP-B.I. PHARMACEUTICALS,INC./RIDGEFIELD-2012-BP-00793NB

PATIENT
  Age: 76 Year
  Sex: Female
  Weight: 51 kg

DRUGS (7)
  1. TEGRETOL [Concomitant]
     Indication: EPILEPSY
     Dosage: 200 MG
     Route: 048
     Dates: start: 20111221
  2. URSO 250 [Concomitant]
     Indication: HEPATITIS C
     Dosage: 600 MG
     Route: 048
     Dates: start: 20051129
  3. PRADAXA [Suspect]
     Indication: ATRIAL FIBRILLATION
     Dosage: 220 MG
     Route: 048
     Dates: start: 20110601
  4. LIVACT [Concomitant]
     Indication: HYPOALBUMINAEMIA
     Dosage: 12.45 G
     Route: 048
     Dates: start: 20111018
  5. LOSARTAN POTASSIUM [Concomitant]
     Indication: HYPERTENSION
     Dosage: 50 MG
     Route: 048
     Dates: start: 20110417
  6. KEPPRA [Concomitant]
     Indication: EPILEPSY
     Dosage: 1000 MG
     Route: 048
     Dates: start: 20120105, end: 20120118
  7. ADALAT CC [Concomitant]
     Indication: HYPERTENSION
     Dosage: 40 MG
     Route: 048
     Dates: start: 20011212

REACTIONS (2)
  - PROTEIN INDUCED BY VITAMIN K ABSENCE OR ANTAGONIST II INCREASED [None]
  - LOSS OF CONSCIOUSNESS [None]
